FAERS Safety Report 13682485 (Version 6)
Quarter: 2021Q4

REPORT INFORMATION
  Report Type: Report from Study
  Country: US (occurrence: US)
  Receive Date: 20170623
  Receipt Date: 20211101
  Transmission Date: 20220303
  Serious: Yes (Hospitalization, Other)
  Sender: FDA-Public Use
  Company Number: US-BRISTOL-MYERS SQUIBB COMPANY-BMS-2017-050092

PATIENT
  Age: 68 Year
  Sex: Female
  Weight: 77.5 kg

DRUGS (2)
  1. NIVOLUMAB [Suspect]
     Active Substance: NIVOLUMAB
     Indication: Cervix carcinoma
     Dosage: 3 MG/KG, Q2WK
     Route: 042
     Dates: start: 20170526
  2. IPILIMUMAB [Suspect]
     Active Substance: IPILIMUMAB
     Indication: Cervix carcinoma
     Dosage: 1 MG/KG, Q6WK
     Route: 042
     Dates: start: 20170526

REACTIONS (3)
  - Embolic stroke [Recovered/Resolved]
  - Dyspnoea [Recovered/Resolved]
  - Hyperthyroidism [Recovered/Resolved]

NARRATIVE: CASE EVENT DATE: 20170604
